FAERS Safety Report 16940637 (Version 1)
Quarter: 2020Q3

REPORT INFORMATION
  Report Type: Spontaneous
  Country: TR (occurrence: TR)
  Receive Date: 20191021
  Receipt Date: 20191021
  Transmission Date: 20201105
  Serious: Yes (Other)
  Sender: FDA-Public Use
  Company Number: NVSC2019TR009388

PATIENT
  Age: 40 Year
  Sex: Female

DRUGS (2)
  1. FINGOLIMOD. [Suspect]
     Active Substance: FINGOLIMOD
     Indication: RELAPSING-REMITTING MULTIPLE SCLEROSIS
     Route: 065
  2. INTERFERON BETA?1B [Suspect]
     Active Substance: INTERFERON BETA-1B
     Indication: RELAPSING-REMITTING MULTIPLE SCLEROSIS
     Route: 065

REACTIONS (2)
  - Disease progression [Unknown]
  - Relapsing-remitting multiple sclerosis [Unknown]
